FAERS Safety Report 7337610-8 (Version None)
Quarter: 2011Q1

REPORT INFORMATION
  Report Type: 
  Country: None (occurrence: None)
  Receive Date: 20110308
  Receipt Date: 20110301
  Transmission Date: 20110831
  Serious: Yes (Hospitalization)
  Sender: FDA-Public Use
  Company Number: IT-SANOFI-AVENTIS-2011SA004914

PATIENT
  Age: 22 Year
  Sex: Female

DRUGS (1)
  1. FERLIXIT [Suspect]
     Route: 041
     Dates: start: 20101210, end: 20101210

REACTIONS (2)
  - VERTIGO [None]
  - ASTHENIA [None]
